FAERS Safety Report 20625663 (Version 1)
Quarter: 2022Q1

REPORT INFORMATION
  Report Type: Spontaneous
  Country: US (occurrence: None)
  Receive Date: 20220323
  Receipt Date: 20220323
  Transmission Date: 20220424
  Serious: No
  Sender: FDA-Public Use
  Company Number: US-ROCHE-3005688

PATIENT
  Age: 78 Year
  Sex: Female
  Weight: 68.100 kg

DRUGS (1)
  1. ERIVEDGE [Suspect]
     Active Substance: VISMODEGIB
     Indication: Basal cell carcinoma
     Route: 048
     Dates: start: 20211007

REACTIONS (4)
  - Alopecia [Unknown]
  - Chest pain [Unknown]
  - Abdominal pain [Unknown]
  - Blister [Unknown]

NARRATIVE: CASE EVENT DATE: 20211101
